FAERS Safety Report 6151509-4 (Version None)
Quarter: 2009Q2

REPORT INFORMATION
  Report Type: 
  Country: None (occurrence: None)
  Receive Date: 20090408
  Receipt Date: 20090330
  Transmission Date: 20091009
  Serious: Yes (Hospitalization)
  Sender: FDA-Public Use
  Company Number: 2008SP013306

PATIENT
  Age: 44 Year
  Sex: Male
  Weight: 94 kg

DRUGS (2)
  1. REBETOL [Suspect]
     Indication: HEPATITIS C
     Dates: start: 20070221, end: 20070519
  2. PEGASYS [Suspect]
     Indication: HEPATITIS C
     Dates: start: 20070221, end: 20070519

REACTIONS (5)
  - GINGIVAL BLEEDING [None]
  - HAEMOGLOBIN DECREASED [None]
  - NEUTROPHIL COUNT DECREASED [None]
  - PLATELET COUNT DECREASED [None]
  - WHITE BLOOD CELL COUNT DECREASED [None]
